FAERS Safety Report 16415011 (Version 1)
Quarter: 2019Q2

REPORT INFORMATION
  Report Type: Spontaneous
  Country: US (occurrence: US)
  Receive Date: 20190611
  Receipt Date: 20190611
  Transmission Date: 20190711
  Serious: No
  Sender: FDA-Public Use
  Company Number: US-SEPTODONT-201804949

PATIENT
  Sex: Female

DRUGS (1)
  1. ARTICAINE 4% 1:100K [Suspect]
     Active Substance: ARTICAINE HYDROCHLORIDE\EPINEPHRINE BITARTRATE
     Indication: DENTAL LOCAL ANAESTHESIA

REACTIONS (3)
  - Occupational exposure to product [Recovered/Resolved]
  - Device breakage [Unknown]
  - Splinter [Recovered/Resolved]
